FAERS Safety Report 9848442 (Version 1)
Quarter: 2014Q1

REPORT INFORMATION
  Report Type: Spontaneous
  Country: CH (occurrence: CH)
  Receive Date: 20140128
  Receipt Date: 20140128
  Transmission Date: 20141002
  Serious: Yes (Life-Threatening)
  Sender: FDA-Public Use
  Company Number: PHHY2014CH007526

PATIENT
  Age: 36 Year
  Sex: Female

DRUGS (16)
  1. RITALIN [Suspect]
     Dosage: 50 MG, DAILY
     Route: 048
  2. MORPHIN//MORPHINE SULFATE [Concomitant]
     Dosage: 270 MG, BID
     Route: 048
  3. STILNOX [Concomitant]
     Dosage: 20 MG, QD
     Route: 048
  4. SURMONTIL [Concomitant]
     Dosage: 30 MG, QD
     Route: 048
  5. TOREM [Concomitant]
     Dosage: 20 MG, QD
     Route: 048
     Dates: start: 201311, end: 201311
  6. KALIUM [Concomitant]
     Dosage: UNK UKN, UNK
     Dates: start: 201311, end: 201311
  7. MAGNESIUM [Concomitant]
     Dosage: UNK UKN, UNK
     Dates: start: 201311, end: 201311
  8. PANTOZOL [Concomitant]
     Dosage: 40 MG, QD
     Dates: start: 201311, end: 201311
  9. DOSPIR [Concomitant]
     Dosage: 1 DF, TID
     Route: 055
     Dates: start: 201311, end: 201311
  10. MARCOUMAR [Concomitant]
     Dosage: 1 DF, UNK
     Route: 048
     Dates: start: 201311, end: 201311
  11. AUGMENTIN [Concomitant]
     Dosage: 0.6 G, TID
     Route: 041
     Dates: start: 201311, end: 201311
  12. FRAGMIN [Concomitant]
     Dosage: 18000 IU, QD
     Dates: start: 201311, end: 201311
  13. BELOC [Concomitant]
     Dosage: 25 MG, QD
     Dates: start: 201311, end: 201311
  14. CORDARONE [Concomitant]
     Dosage: 150 MG, TID
     Route: 040
     Dates: start: 20131111, end: 20131111
  15. CORDARONE [Concomitant]
     Dosage: 200 MG, TID
     Route: 048
     Dates: start: 201311, end: 201311
  16. MST [Concomitant]
     Dosage: 100 MG, QD
     Route: 048
     Dates: start: 201311, end: 201311

REACTIONS (7)
  - Hypoglycaemia [Recovered/Resolved]
  - Convulsion [Unknown]
  - Loss of consciousness [Unknown]
  - Hypothermia [Unknown]
  - Hypotension [Unknown]
  - Cardiac arrest [Recovered/Resolved]
  - Pulse absent [Unknown]
